FAERS Safety Report 9379377 (Version 1)
Quarter: 2013Q2

REPORT INFORMATION
  Report Type: Spontaneous
  Country: US (occurrence: None)
  Receive Date: 20130626
  Receipt Date: 20130626
  Transmission Date: 20140414
  Serious: Yes (Death, Hospitalization, Other)
  Sender: FDA-Public Use
  Company Number: 2013P1009419

PATIENT
  Age: 84 Year
  Sex: Male

DRUGS (8)
  1. GLYBURIDE [Suspect]
     Indication: TYPE 2 DIABETES MELLITUS
     Route: 048
     Dates: start: 2003, end: 201105
  2. ROPINIROLE [Suspect]
     Indication: ACCIDENTAL EXPOSURE TO PRODUCT
     Route: 048
     Dates: start: 201105, end: 201106
  3. ASPIRIN [Concomitant]
  4. DIGOXIN [Concomitant]
  5. METOPROLOL [Concomitant]
  6. SIMVASTATIN [Concomitant]
  7. UNKNOWN PROSTATE MEDICATION [Concomitant]
  8. LEVOTHYROXINE [Concomitant]

REACTIONS (15)
  - Accidental exposure to product [None]
  - Drug dispensing error [None]
  - Heart valve replacement [None]
  - Aortic stent insertion [None]
  - Fall [None]
  - Gait disturbance [None]
  - Spinal column injury [None]
  - Multiple injuries [None]
  - Muscle disorder [None]
  - Renal impairment [None]
  - Walking aid user [None]
  - Cardiac disorder [None]
  - Respiratory disorder [None]
  - Arteriosclerosis [None]
  - Renal artery arteriosclerosis [None]
